FAERS Safety Report 20573415 (Version 3)
Quarter: 2022Q2

REPORT INFORMATION
  Report Type: Spontaneous
  Country: ES (occurrence: ES)
  Receive Date: 20220309
  Receipt Date: 20220614
  Transmission Date: 20220721
  Serious: Yes (Hospitalization, Other)
  Sender: FDA-Public Use
  Company Number: ES-LABALTER-202200010

PATIENT
  Age: 45 Year
  Sex: Male

DRUGS (4)
  1. PREGABALIN [Suspect]
     Active Substance: PREGABALIN
     Indication: Substance use
     Dosage: 56 CAPSULES OF 75 MG FOR 2-3 DAYS
  2. PAROXETINE [Concomitant]
     Active Substance: PAROXETINE
  3. OLANZAPINE [Concomitant]
     Active Substance: OLANZAPINE
  4. LITHIUM [Concomitant]
     Active Substance: LITHIUM

REACTIONS (5)
  - Substance use [Recovered/Resolved]
  - Drug abuse [Recovered/Resolved]
  - Toxicity to various agents [Recovered/Resolved]
  - Toxic encephalopathy [Recovered/Resolved]
  - Intentional overdose [Unknown]
